FAERS Safety Report 17933164 (Version 2)
Quarter: 2020Q3

REPORT INFORMATION
  Report Type: Spontaneous
  Country: JP (occurrence: JP)
  Receive Date: 20200623
  Receipt Date: 20200715
  Transmission Date: 20201103
  Serious: Yes (Hospitalization)
  Sender: FDA-Public Use
  Company Number: JP-ELI_LILLY_AND_COMPANY-JP202003010580

PATIENT
  Age: 78 Year
  Sex: Female
  Weight: 53 kg

DRUGS (4)
  1. DULOXETINE HYDROCHLORIDE. [Suspect]
     Active Substance: DULOXETINE HYDROCHLORIDE
     Indication: BACK PAIN
     Dosage: 20 MG, DAILY
     Route: 048
     Dates: start: 20200305, end: 20200309
  2. SUMILU STICK [Concomitant]
     Active Substance: FELBINAC
     Indication: PAIN
     Dosage: UNK
     Dates: start: 20200305
  3. MELOXICAM. [Concomitant]
     Active Substance: MELOXICAM
     Indication: PAIN
     Dosage: UNK
     Dates: start: 20200305
  4. TROXIPIDE [Concomitant]
     Active Substance: TROXIPIDE
     Indication: PAIN
     Dosage: UNK
     Dates: start: 20200305

REACTIONS (4)
  - Fall [Recovered/Resolved]
  - Inappropriate antidiuretic hormone secretion [Recovered/Resolved]
  - Dizziness [Recovered/Resolved]
  - Bone contusion [Unknown]

NARRATIVE: CASE EVENT DATE: 20200307
